FAERS Safety Report 6957743-5 (Version None)
Quarter: 2010Q3

REPORT INFORMATION
  Report Type: 
  Country: None (occurrence: None)
  Receive Date: 20100831
  Receipt Date: 20100819
  Transmission Date: 20110219
  Serious: Yes (Hospitalization)
  Sender: FDA-Public Use
  Company Number: JP-AMGEN-QUU422653

PATIENT
  Sex: Female
  Weight: 48 kg

DRUGS (11)
  1. ENBREL [Suspect]
     Indication: RHEUMATOID ARTHRITIS
     Route: 058
     Dates: end: 20100624
  2. RHEUMATREX [Suspect]
     Indication: PRODUCT USED FOR UNKNOWN INDICATION
     Route: 048
     Dates: end: 20100624
  3. PREDNISOLONE [Concomitant]
     Route: 048
  4. ALFACALCIDOL [Concomitant]
     Route: 048
  5. DEPAKENE [Concomitant]
     Route: 048
     Dates: end: 20100624
  6. HYPEN [Concomitant]
     Route: 048
  7. ADALAT - SLOW RELEASE [Concomitant]
     Route: 048
  8. FOSAMAX [Concomitant]
     Route: 048
     Dates: end: 20100624
  9. AMOBAN [Concomitant]
     Route: 048
     Dates: end: 20100624
  10. GASMOTIN [Concomitant]
     Route: 048
  11. TAKEPRON [Concomitant]
     Route: 048
     Dates: end: 20100624

REACTIONS (2)
  - BONE MARROW FAILURE [None]
  - STOMATITIS [None]
